FAERS Safety Report 8272710 (Version 3)
Quarter: 2012Q4

REPORT INFORMATION
  Report Type: 
  Country: US (occurrence: US)
  Receive Date: 20111202
  Receipt Date: 20120925
  Transmission Date: 20130627
  Serious: Yes (Other)
  Sender: FDA-Public Use
  Company Number: US-BAYER-2011-107562

PATIENT
  Age: 29 Year
  Sex: Female
  Weight: 59.86 kg

DRUGS (1)
  1. MIRENA [Suspect]
     Indication: CONTRACEPTION
     Dosage: 20 ?g/d, CONT
     Route: 015
     Dates: start: 20110825, end: 20111101

REACTIONS (7)
  - Device expulsion [None]
  - Endometriosis [None]
  - Post procedural discomfort [None]
  - Ovarian cyst [None]
  - Vaginal haemorrhage [None]
  - Staphylococcal infection [None]
  - Lymphadenitis [None]
